FAERS Safety Report 5604346-0 (Version None)
Quarter: 2008Q1

REPORT INFORMATION
  Report Type: 
  Country: None (occurrence: None)
  Receive Date: 20080128
  Receipt Date: 20080121
  Transmission Date: 20080703
  Serious: Yes (Life-Threatening, Hospitalization)
  Sender: FDA-Public Use
  Company Number: DE-AVENTIS-200810192DE

PATIENT
  Age: 51 Year
  Sex: Male

DRUGS (4)
  1. DOCETAXEL [Suspect]
     Dosage: DOSE: NOT REPORTED
     Route: 042
     Dates: start: 20071201, end: 20071201
  2. FLUOROURACIL [Suspect]
     Dosage: DOSE: NOT REPORTED
     Route: 042
     Dates: start: 20071201, end: 20071201
  3. CISPLATIN [Suspect]
     Dosage: DOSE: NOT REPORTED
     Dates: start: 20071201, end: 20071201
  4. CETUXIMAB [Suspect]
     Dosage: DOSE: NOT REPORTED
     Route: 042

REACTIONS (6)
  - LEUKOPENIA [None]
  - PROTHROMBIN TIME PROLONGED [None]
  - RENAL FAILURE ACUTE [None]
  - SEPSIS [None]
  - SUBILEUS [None]
  - THROMBOCYTOPENIA [None]
